FAERS Safety Report 7584687-0 (Version None)
Quarter: 2011Q2

REPORT INFORMATION
  Report Type: 
  Country: None (occurrence: None)
  Receive Date: 20110630
  Receipt Date: 20110616
  Transmission Date: 20111010
  Serious: Yes (Other)
  Sender: FDA-Public Use
  Company Number: PHHY2011US53563

PATIENT
  Sex: Female

DRUGS (5)
  1. NASACORT AQ [Concomitant]
     Dosage: UNK
  2. CLARITIN [Concomitant]
     Dosage: UNK
  3. FENOFIBRIC ACID [Suspect]
     Dosage: 2.5 MG, QD
     Route: 048
     Dates: end: 20110522
  4. ASTININ [Concomitant]
     Dosage: UNK
  5. FENOFIBRIC ACID [Suspect]
     Dosage: UNK
     Dates: start: 20110603

REACTIONS (4)
  - ILLUSION [None]
  - VISUAL IMPAIRMENT [None]
  - CATARACT [None]
  - MIGRAINE WITH AURA [None]
